FAERS Safety Report 13261735 (Version 1)
Quarter: 2017Q1

REPORT INFORMATION
  Report Type: Report from Study
  Country: CA (occurrence: CA)
  Receive Date: 20170222
  Receipt Date: 20170222
  Transmission Date: 20170428
  Serious: Yes (Other)
  Sender: FDA-Public Use
  Company Number: CA-JNJFOC-20170217560

PATIENT
  Age: 26 Year
  Sex: Male
  Weight: 94 kg

DRUGS (1)
  1. REMICADE [Suspect]
     Active Substance: INFLIXIMAB
     Indication: UVEITIS
     Route: 042
     Dates: start: 20160915

REACTIONS (4)
  - Product use issue [Unknown]
  - Renal colic [Recovering/Resolving]
  - Off label use [Unknown]
  - Uveitis [Unknown]

NARRATIVE: CASE EVENT DATE: 20160915
